FAERS Safety Report 8137599-8 (Version None)
Quarter: 2012Q1

REPORT INFORMATION
  Report Type: 
  Country: None (occurrence: None)
  Receive Date: 20120215
  Receipt Date: 20120209
  Transmission Date: 20120608
  Serious: No
  Sender: FDA-Public Use
  Company Number: US-PFIZER INC-2012036398

PATIENT
  Sex: Female
  Weight: 72.562 kg

DRUGS (2)
  1. PANTOPRAZOLE [Suspect]
     Indication: DYSPEPSIA
     Dosage: 40 MG, 1X/DAY
     Route: 048
     Dates: start: 20120127
  2. ZANTAC [Concomitant]
     Indication: DYSPEPSIA
     Dosage: UNK

REACTIONS (4)
  - FLATULENCE [None]
  - CONDITION AGGRAVATED [None]
  - DYSPEPSIA [None]
  - ABDOMINAL DISTENSION [None]
